FAERS Safety Report 5133010-X (Version None)
Quarter: 2006Q4

REPORT INFORMATION
  Report Type: 
  Country: None (occurrence: None)
  Receive Date: 20061017
  Receipt Date: 20061006
  Transmission Date: 20070319
  Serious: Yes (Hospitalization)
  Sender: FDA-Public Use
  Company Number: 2006-148772-NL

PATIENT
  Age: 70 Year
  Sex: Male

DRUGS (3)
  1. MIRTAZAPINE [Suspect]
     Indication: DEPRESSION
     Dosage: 15 MG QID ORAL
     Route: 048
     Dates: start: 20060717, end: 20060801
  2. RISPERIDONE [Suspect]
     Indication: PSYCHOTIC DISORDER
     Dosage: 4 MG QID ROAL
     Route: 048
     Dates: start: 20060724, end: 20060801
  3. LORAZEPAM [Concomitant]

REACTIONS (1)
  - RHABDOMYOLYSIS [None]
